FAERS Safety Report 25141775 (Version 1)
Quarter: 2025Q1

REPORT INFORMATION
  Report Type: Spontaneous
  Country: HU (occurrence: HU)
  Receive Date: 20250331
  Receipt Date: 20250331
  Transmission Date: 20250409
  Serious: Yes (Other)
  Sender: ROCHE
  Company Number: HU-ROCHE-10000239979

PATIENT
  Age: 33 Year

DRUGS (1)
  1. OCREVUS [Suspect]
     Active Substance: OCRELIZUMAB
     Indication: Product used for unknown indication
     Route: 065

REACTIONS (7)
  - Dental plaque [Unknown]
  - Gingivitis [Unknown]
  - Tooth loss [Unknown]
  - Loose tooth [Unknown]
  - Gingivitis ulcerative [Unknown]
  - Gingival ulceration [Unknown]
  - Pain [Unknown]
